FAERS Safety Report 16397621 (Version 1)
Quarter: 2019Q2

REPORT INFORMATION
  Report Type: Spontaneous
  Country: US (occurrence: US)
  Receive Date: 20190606
  Receipt Date: 20190606
  Transmission Date: 20190711
  Serious: No
  Sender: FDA-Public Use
  Company Number: US-ASTRAZENECA-2019SE72333

PATIENT
  Age: 27097 Day
  Sex: Female
  Weight: 70.3 kg

DRUGS (3)
  1. SYMBICORT [Suspect]
     Active Substance: BUDESONIDE\FORMOTEROL FUMARATE DIHYDRATE
     Indication: PULMONARY FUNCTION TEST
     Dosage: 2 PUFFS TWICE DAILY, TWO TIMES A DAY
     Route: 055
     Dates: start: 20190329
  2. ELIQUIS [Concomitant]
     Active Substance: APIXABAN
     Indication: COAGULATION TIME PROLONGED
     Route: 048
  3. VENTOLIN ALBUTEROL [Concomitant]
     Indication: WHEEZING
     Route: 055

REACTIONS (6)
  - Off label use [Unknown]
  - Aphonia [Unknown]
  - Incorrect dose administered [Unknown]
  - Product use in unapproved indication [Unknown]
  - Device issue [Unknown]
  - Intentional product misuse [Unknown]

NARRATIVE: CASE EVENT DATE: 20190426
